FAERS Safety Report 24053389 (Version 1)
Quarter: 2024Q3

REPORT INFORMATION
  Report Type: Report from Study
  Country: US (occurrence: US)
  Receive Date: 20240705
  Receipt Date: 20240705
  Transmission Date: 20241016
  Serious: Yes (Other)
  Sender: ABBVIE
  Company Number: US-ABBVIE-5826088

PATIENT
  Sex: Male

DRUGS (1)
  1. SKYRIZI [Suspect]
     Active Substance: RISANKIZUMAB-RZAA
     Indication: Product used for unknown indication
     Dosage: LAST ADMIN DATE 2024
     Route: 058
     Dates: start: 20240501

REACTIONS (3)
  - Giant cell arteritis [Unknown]
  - Polymyalgia rheumatica [Unknown]
  - Off label use [Unknown]

NARRATIVE: CASE EVENT DATE: 20240101
